FAERS Safety Report 20862882 (Version 1)
Quarter: 2022Q2

REPORT INFORMATION
  Report Type: Report from Study
  Country: US (occurrence: US)
  Receive Date: 20220523
  Receipt Date: 20220523
  Transmission Date: 20220721
  Serious: Yes (Other)
  Sender: FDA-Public Use
  Company Number: US-PFIZER INC-202200714049

PATIENT
  Age: 75 Year
  Sex: Female
  Weight: 47.6 kg

DRUGS (7)
  1. FUROSEMIDE [Suspect]
     Active Substance: FUROSEMIDE
     Indication: Oedema
     Dosage: UNK
     Dates: start: 20220429
  2. REMODULIN [Suspect]
     Active Substance: TREPROSTINIL
     Indication: Pulmonary arterial hypertension
     Dosage: 0.011 UG/KG
     Route: 058
     Dates: start: 20220412
  3. REMODULIN [Suspect]
     Active Substance: TREPROSTINIL
     Dosage: 0.019 UG/KG
     Route: 058
     Dates: start: 202204
  4. BOSENTAN [Concomitant]
     Active Substance: BOSENTAN
     Dosage: UNK
  5. AMLODIPINE BESYLATE [Concomitant]
     Active Substance: AMLODIPINE BESYLATE
     Dosage: UNK
  6. VENTAVIS [Concomitant]
     Active Substance: ILOPROST
     Dosage: UNK
  7. VELETRI [Concomitant]
     Active Substance: EPOPROSTENOL
     Dosage: UNK

REACTIONS (21)
  - Scleroderma [Unknown]
  - Infusion site pain [Unknown]
  - Infusion site swelling [Unknown]
  - Infusion site erythema [Unknown]
  - Infusion site discomfort [Unknown]
  - Cough [Not Recovered/Not Resolved]
  - Dyspnoea exertional [Unknown]
  - Dyspnoea [Not Recovered/Not Resolved]
  - Feeling abnormal [Unknown]
  - Chills [Recovered/Resolved]
  - Fatigue [Unknown]
  - Therapy non-responder [Unknown]
  - Malaise [Unknown]
  - Renal disorder [Unknown]
  - Oedema peripheral [Not Recovered/Not Resolved]
  - Joint swelling [Unknown]
  - Peripheral swelling [Unknown]
  - Anxiety [Not Recovered/Not Resolved]
  - Generalised oedema [Unknown]
  - Pollakiuria [Unknown]
  - Muscle spasms [Unknown]

NARRATIVE: CASE EVENT DATE: 20220401
